FAERS Safety Report 5548066-X (Version None)
Quarter: 2007Q4

REPORT INFORMATION
  Report Type: 
  Country: None (occurrence: None)
  Receive Date: 20071206
  Receipt Date: 20071129
  Transmission Date: 20080405
  Serious: Yes (Death)
  Sender: FDA-Public Use
  Company Number: 430001E07PRT

PATIENT
  Age: 69 Year
  Sex: Female

DRUGS (9)
  1. NOVANTRONE [Suspect]
     Indication: ACUTE MYELOID LEUKAEMIA
     Dosage: 33 MG
     Dates: start: 20070629, end: 20070703
  2. CYTOSAR-U [Suspect]
     Indication: ACUTE MYELOID LEUKAEMIA
     Dosage: 1120 MG
     Dates: start: 20070629, end: 20070705
  3. ETOPOSIDE [Suspect]
     Indication: ACUTE MYELOID LEUKAEMIA
     Dosage: 480 MG
     Dates: start: 20070629, end: 20070701
  4. ISOSORBIDE MONONITRATE [Concomitant]
  5. ACETYLSALICYLIC ACID SRT [Concomitant]
  6. IMIPENEM [Concomitant]
  7. FUROSEMIDE [Concomitant]
  8. VANCOMYCIN [Concomitant]
  9. AMPHOTERICIN B [Concomitant]

REACTIONS (2)
  - CARDIO-RESPIRATORY ARREST [None]
  - CARDIOPULMONARY FAILURE [None]
